FAERS Safety Report 9757551 (Version 1)
Quarter: 2013Q4

REPORT INFORMATION
  Report Type: Spontaneous
  Country: US (occurrence: US)
  Receive Date: 20131216
  Receipt Date: 20131216
  Transmission Date: 20140711
  Serious: Yes (Other)
  Sender: FDA-Public Use
  Company Number: US-ROCHE-1316208

PATIENT
  Sex: Male

DRUGS (2)
  1. VALIUM [Suspect]
     Indication: CHONDRITIS
     Route: 048
  2. DIAZEPAM [Suspect]
     Indication: CHONDRITIS
     Route: 065

REACTIONS (6)
  - Chest pain [Not Recovered/Not Resolved]
  - Occipital neuralgia [Not Recovered/Not Resolved]
  - Headache [Not Recovered/Not Resolved]
  - Nausea [Not Recovered/Not Resolved]
  - Dizziness [Not Recovered/Not Resolved]
  - Drug ineffective [Unknown]
